FAERS Safety Report 7886348-7 (Version None)
Quarter: 2011Q4

REPORT INFORMATION
  Report Type: 
  Country: None (occurrence: None)
  Receive Date: 20111102
  Receipt Date: 20110701
  Transmission Date: 20120403
  Serious: No
  Sender: FDA-Public Use
  Company Number: US-AMGEN-USASP2011033715

PATIENT
  Age: 47 Year
  Sex: Female

DRUGS (2)
  1. ENBREL [Suspect]
     Indication: PSORIATIC ARTHROPATHY
  2. ENBREL [Suspect]
     Indication: PSORIASIS
     Dosage: 50 MG, QWK
     Dates: start: 20090101

REACTIONS (8)
  - FURUNCLE [None]
  - PSORIATIC ARTHROPATHY [None]
  - INJECTION SITE HAEMORRHAGE [None]
  - LOWER LIMB FRACTURE [None]
  - NASAL CONGESTION [None]
  - PSORIASIS [None]
  - NASOPHARYNGITIS [None]
  - INJECTION SITE HAEMATOMA [None]
